FAERS Safety Report 16900714 (Version 1)
Quarter: 2019Q4

REPORT INFORMATION
  Report Type: Spontaneous
  Country: US (occurrence: US)
  Receive Date: 20191009
  Receipt Date: 20191009
  Transmission Date: 20200122
  Serious: No
  Sender: FDA-Public Use
  Company Number: US-SA-2019SA271549

PATIENT
  Sex: Male

DRUGS (6)
  1. TRIAMCINOLONE ACETONIDE. [Concomitant]
     Active Substance: TRIAMCINOLONE ACETONIDE
  2. INDOMETHACIN [INDOMETACIN] [Concomitant]
     Active Substance: INDOMETHACIN
  3. CLOBETASOL E [Concomitant]
  4. LOSARTAN POTASSIUM. [Concomitant]
     Active Substance: LOSARTAN POTASSIUM
  5. OMEPRAZOLE [OMEPRAZOLE SODIUM] [Concomitant]
     Active Substance: OMEPRAZOLE SODIUM
  6. DUPIXENT [Suspect]
     Active Substance: DUPILUMAB
     Indication: DERMATITIS ATOPIC
     Dosage: 300 MG, QOW
     Route: 058

REACTIONS (1)
  - Skin fissures [Unknown]
